APPROVED DRUG PRODUCT: CLOZAPINE
Active Ingredient: CLOZAPINE
Strength: 25MG
Dosage Form/Route: TABLET;ORAL
Application: A074546 | Product #001
Applicant: SANDOZ INC
Approved: Aug 30, 1996 | RLD: No | RS: No | Type: DISCN